FAERS Safety Report 10077825 (Version 2)
Quarter: 2014Q3

REPORT INFORMATION
  Report Type: Report from Study
  Country: BR (occurrence: BR)
  Receive Date: 20140414
  Receipt Date: 20140916
  Transmission Date: 20150326
  Serious: Yes (Life-Threatening, Other)
  Sender: FDA-Public Use
  Company Number: PHHY2014BR044701

PATIENT
  Age: 31 Year
  Sex: Female
  Weight: 51 kg

DRUGS (3)
  1. FLUIMUCIL [Suspect]
     Active Substance: ACETYLCYSTEINE
     Indication: INCREASED VISCOSITY OF BRONCHIAL SECRETION
     Dosage: 1 DF, DAILY
  2. ZOTEON [Suspect]
     Active Substance: TOBRAMYCIN
     Indication: CYSTIC FIBROSIS
  3. ZOTEON [Suspect]
     Active Substance: TOBRAMYCIN
     Indication: PSEUDOMONAS INFECTION
     Dosage: 4 DF, Q12H
     Dates: end: 20140404

REACTIONS (11)
  - Bronchial hyperreactivity [Recovering/Resolving]
  - Parosmia [Recovering/Resolving]
  - Concomitant disease aggravated [Recovering/Resolving]
  - Presyncope [Recovering/Resolving]
  - Cough [Recovering/Resolving]
  - Respiratory arrest [Recovering/Resolving]
  - Apparent death [Unknown]
  - Fatigue [Recovered/Resolved]
  - Dyspnoea [Recovered/Resolved]
  - Suffocation feeling [Recovering/Resolving]
  - Respiratory distress [Unknown]

NARRATIVE: CASE EVENT DATE: 20140329
